FAERS Safety Report 6223255-X (Version None)
Quarter: 2009Q2

REPORT INFORMATION
  Report Type: 
  Country: None (occurrence: None)
  Receive Date: 20090611
  Receipt Date: 20090602
  Transmission Date: 20091009
  Serious: Yes (Disabling, Other)
  Sender: FDA-Public Use
  Company Number: PHEH2009US05106

PATIENT
  Sex: Female
  Weight: 61 kg

DRUGS (7)
  1. RECLAST [Suspect]
     Indication: OSTEOPOROSIS
     Dosage: 5 MG, ONCE A YEAR
     Dates: start: 20090504, end: 20090504
  2. CADUET [Concomitant]
     Indication: PRINZMETAL ANGINA
     Dosage: 10/10, QD
     Route: 048
  3. IMDUR [Concomitant]
     Indication: PRINZMETAL ANGINA
     Dosage: 30 MG, QD
     Route: 048
  4. OSCAL [Concomitant]
     Indication: OSTEOPOROSIS
     Dosage: UNK
     Route: 048
  5. ASPIRIN [Concomitant]
     Indication: PROPHYLAXIS
     Dosage: 81 MG, UNK
     Route: 048
  6. TUMS [Concomitant]
     Indication: OSTEOPOROSIS
     Dosage: UNK
     Route: 048
  7. OMEPRAZOLE [Concomitant]
     Indication: GASTROOESOPHAGEAL REFLUX DISEASE
     Dosage: 20 MG, BID
     Route: 048

REACTIONS (6)
  - ARTHRALGIA [None]
  - DEAFNESS [None]
  - MYALGIA [None]
  - NAUSEA [None]
  - PAIN [None]
  - VOMITING [None]
